FAERS Safety Report 23201738 (Version 5)
Quarter: 2024Q1

REPORT INFORMATION
  Report Type: Spontaneous
  Country: JP (occurrence: JP)
  Receive Date: 20231120
  Receipt Date: 20240214
  Transmission Date: 20240410
  Serious: Yes (Disabling, Other)
  Sender: FDA-Public Use
  Company Number: JP-JNJFOC-20231135772

PATIENT
  Age: 78 Year
  Sex: Male
  Weight: 70.7 kg

DRUGS (12)
  1. VELCADE [Suspect]
     Active Substance: BORTEZOMIB
     Indication: Plasma cell myeloma
     Dosage: 13 MILLIGRAM/SQ. METER, 2/WEEK
     Route: 058
     Dates: start: 20230711, end: 20230721
  2. VELCADE [Suspect]
     Active Substance: BORTEZOMIB
     Dosage: UNK
     Route: 065
  3. DEXAMETHASONE [Concomitant]
     Active Substance: DEXAMETHASONE
     Indication: Plasma cell myeloma
     Dosage: UNK
     Route: 065
  4. LENADEX [Concomitant]
     Active Substance: DEXAMETHASONE ACETATE
     Indication: Plasma cell myeloma
     Dosage: 8 MILLIGRAM, 2/WEEK
     Route: 048
     Dates: start: 20230711, end: 20230722
  5. ACETAMINOPHEN [Concomitant]
     Active Substance: ACETAMINOPHEN
     Indication: Bone pain
     Dosage: 500 MILLIGRAM, TID
     Route: 048
     Dates: end: 20230722
  6. FEBUXOSTAT [Concomitant]
     Active Substance: FEBUXOSTAT
     Indication: Hyperuricaemia
     Dosage: 10 MILLIGRAM, QD
     Route: 048
     Dates: end: 20230722
  7. MAGNESIUM OXIDE [Concomitant]
     Active Substance: MAGNESIUM OXIDE
     Indication: Constipation
     Dosage: 400 MILLIGRAM, TID
     Route: 048
     Dates: end: 20230722
  8. LOSARTAN [Concomitant]
     Active Substance: LOSARTAN
     Indication: Hypertension
     Dosage: 50 MILLIGRAM, QD
     Route: 048
     Dates: end: 20230722
  9. NEXIUM [Concomitant]
     Active Substance: ESOMEPRAZOLE MAGNESIUM
     Indication: Supportive care
     Dosage: 20 MILLIGRAM, QD
     Route: 048
     Dates: start: 20230712, end: 20230722
  10. Bilanoa od [Concomitant]
     Indication: Rhinorrhoea
     Dosage: 20 MILLIGRAM, QD
     Route: 048
     Dates: start: 20230712, end: 20230721
  11. SULFAMETHOXAZOLE\TRIMETHOPRIM [Concomitant]
     Active Substance: SULFAMETHOXAZOLE\TRIMETHOPRIM
     Indication: Prophylaxis
     Dosage: 0.5 DOSAGE FORM, TID
     Route: 048
     Dates: start: 20230721, end: 20230721
  12. VALTREX [Concomitant]
     Active Substance: VALACYCLOVIR HYDROCHLORIDE
     Indication: Prophylaxis
     Dosage: 500 MILLIGRAM, TID
     Route: 048
     Dates: start: 20230721, end: 20230721

REACTIONS (5)
  - Myelitis [Recovered/Resolved with Sequelae]
  - Subarachnoid haemorrhage [Recovering/Resolving]
  - Spinal subdural haematoma [Recovered/Resolved with Sequelae]
  - Cytomegalovirus viraemia [Recovering/Resolving]
  - Thrombocytopenia [Recovered/Resolved]

NARRATIVE: CASE EVENT DATE: 20230718
